FAERS Safety Report 8415812-7 (Version None)
Quarter: 2012Q2

REPORT INFORMATION
  Report Type: 
  Country: None (occurrence: None)
  Receive Date: 20120606
  Receipt Date: 20120530
  Transmission Date: 20120825
  Serious: Yes (Hospitalization)
  Sender: FDA-Public Use
  Company Number: IT-ASTRAZENECA-2012SE36088

PATIENT
  Sex: Female

DRUGS (4)
  1. ASPIRIN [Concomitant]
  2. HYPERTENSION MEDICATION [Concomitant]
  3. CRESTOR [Suspect]
     Indication: DYSLIPIDAEMIA
     Route: 048
  4. HYPOGLYCAEMIC [Concomitant]

REACTIONS (2)
  - HYPERTENSION [None]
  - HAEMORRHAGIC STROKE [None]
